FAERS Safety Report 4924128-2 (Version None)
Quarter: 2006Q1

REPORT INFORMATION
  Report Type: 
  Country: None (occurrence: None)
  Receive Date: 20060227
  Receipt Date: 20051108
  Transmission Date: 20060701
  Serious: No
  Sender: FDA-Public Use
  Company Number: US-GLAXOSMITHKLINE-A0582807A

PATIENT
  Age: 24 Year
  Sex: Female
  Weight: 136.4 kg

DRUGS (2)
  1. WELLBUTRIN XL [Suspect]
     Indication: DEPRESSION
     Dosage: 300MG PER DAY
     Route: 048
  2. PROZAC [Concomitant]

REACTIONS (2)
  - MALAISE [None]
  - THERAPEUTIC RESPONSE DECREASED [None]
